FAERS Safety Report 24946032 (Version 3)
Quarter: 2025Q1

REPORT INFORMATION
  Report Type: Report from Study
  Country: US (occurrence: US)
  Receive Date: 20250209
  Receipt Date: 20250218
  Transmission Date: 20250409
  Serious: Yes (Death)
  Sender: ROCHE
  Company Number: US-ROCHE-10000202643

PATIENT
  Age: 79 Year
  Sex: Male

DRUGS (5)
  1. ESBRIET [Suspect]
     Active Substance: PIRFENIDONE
     Indication: Interstitial lung disease
     Dosage: TAKE 1 TABLET BY MOUTH 3 TIMES A DAY
     Route: 048
     Dates: start: 202302
  2. ESBRIET [Suspect]
     Active Substance: PIRFENIDONE
     Indication: Essential hypertension
     Route: 048
  3. ESBRIET [Suspect]
     Active Substance: PIRFENIDONE
     Route: 048
  4. ESBRIET [Suspect]
     Active Substance: PIRFENIDONE
     Route: 048
  5. ESBRIET [Suspect]
     Active Substance: PIRFENIDONE
     Route: 065

REACTIONS (1)
  - Death [Fatal]
